FAERS Safety Report 9563413 (Version 1)
Quarter: 2013Q3

REPORT INFORMATION
  Report Type: Spontaneous
  Country: US (occurrence: None)
  Receive Date: 20130926
  Receipt Date: 20130926
  Transmission Date: 20140515
  Serious: Yes (Hospitalization)
  Sender: FDA-Public Use
  Company Number: None

PATIENT
  Age: 11 Year
  Sex: Male
  Weight: 59 kg

DRUGS (20)
  1. NAFCILLIN [Suspect]
  2. HEPARIN [Concomitant]
  3. ACETAMINOPHEN [Concomitant]
  4. ALPRAZOLAM [Concomitant]
  5. CALCIUM ACETATE [Concomitant]
  6. CASPOFUNGIN [Concomitant]
  7. FENTANYL [Concomitant]
  8. FURSEOMIDE [Concomitant]
  9. HYDRALAZINE [Concomitant]
  10. HYOSCYAMINE [Concomitant]
  11. LANSOPRAZOLE [Concomitant]
  12. LORAZEPAM [Concomitant]
  13. MEPERIDINE [Concomitant]
  14. METOCLOPRAMIDE [Concomitant]
  15. METOPROLOL [Concomitant]
  16. MIDAZOLAM [Concomitant]
  17. NAFCILLIN [Concomitant]
  18. RIFAMPIN [Concomitant]
  19. OXYCODONE [Concomitant]
  20. VANCOMYCIN [Concomitant]

REACTIONS (1)
  - Leukopenia [None]
